FAERS Safety Report 23994014 (Version 1)
Quarter: 2024Q2

REPORT INFORMATION
  Report Type: Spontaneous
  Country: JP (occurrence: JP)
  Receive Date: 20240620
  Receipt Date: 20240620
  Transmission Date: 20240716
  Serious: Yes (Other)
  Sender: FDA-Public Use
  Company Number: JP-002147023-NVSJ2023JP012550

PATIENT
  Age: 27 Year
  Sex: Female

DRUGS (1)
  1. DICLOFENAC [Suspect]
     Active Substance: DICLOFENAC
     Indication: Product used for unknown indication
     Dosage: DAILY DOSE(S): UNKNOWN ?THERAPY DATES (FROM/TO): UNKNOWN?THERAPY DURATION: UNKNOWN
     Route: 048

REACTIONS (2)
  - Anaphylactic reaction [Unknown]
  - Rash [Unknown]
